FAERS Safety Report 17441719 (Version 1)
Quarter: 2020Q1

REPORT INFORMATION
  Report Type: Spontaneous
  Country: US (occurrence: US)
  Receive Date: 20200220
  Receipt Date: 20200220
  Transmission Date: 20200409
  Serious: Yes (Hospitalization, Other)
  Sender: FDA-Public Use
  Company Number: US-ENDO PHARMACEUTICALS INC-2020-001716

PATIENT
  Age: 54 Year
  Sex: Male
  Weight: 79.37 kg

DRUGS (5)
  1. XIAFLEX [Suspect]
     Active Substance: COLLAGENASE CLOSTRIDIUM HISTOLYTICUM
     Dosage: UNK UNKNOWN, CYCLE 2: INJECTION 1
     Route: 065
     Dates: start: 20200106
  2. MEGA MEN [Concomitant]
     Active Substance: MINERALS\VITAMINS
     Indication: PRODUCT USED FOR UNKNOWN INDICATION
     Dosage: 2 DF, DAILY
     Route: 065
  3. XIAFLEX [Suspect]
     Active Substance: COLLAGENASE CLOSTRIDIUM HISTOLYTICUM
     Indication: PEYRONIE^S DISEASE
     Dosage: UNK UNKNOWN, CYCLE 2: INJECTION 2
     Route: 065
     Dates: start: 20200107
  4. XIAFLEX [Suspect]
     Active Substance: COLLAGENASE CLOSTRIDIUM HISTOLYTICUM
     Dosage: UNK UNKNOWN, CYCLE 1: INJECTION 2
     Route: 065
     Dates: start: 20191112
  5. XIAFLEX [Suspect]
     Active Substance: COLLAGENASE CLOSTRIDIUM HISTOLYTICUM
     Dosage: UNK UNKNOWN, CYCLE 1: INJECTION 1
     Route: 065
     Dates: start: 20191111

REACTIONS (1)
  - Cerebrovascular accident [Recovered/Resolved with Sequelae]

NARRATIVE: CASE EVENT DATE: 20200123
